FAERS Safety Report 14112271 (Version 3)
Quarter: 2018Q1

REPORT INFORMATION
  Report Type: Report from Study
  Country: US (occurrence: US)
  Receive Date: 20171020
  Receipt Date: 20180215
  Transmission Date: 20180508
  Serious: Yes (Hospitalization, Other)
  Sender: FDA-Public Use
  Company Number: US-INCYTE CORPORATION-2017IN008861

PATIENT

DRUGS (1)
  1. JAKAFI [Suspect]
     Active Substance: RUXOLITINIB
     Indication: POLYCYTHAEMIA VERA
     Dosage: UNK
     Route: 048
     Dates: end: 2017

REACTIONS (12)
  - Cardiac disorder [Unknown]
  - Pyrexia [Unknown]
  - Epilepsy [Unknown]
  - Rash [Unknown]
  - Dyspnoea [Unknown]
  - Myocardial infarction [Unknown]
  - Influenza like illness [Unknown]
  - Migraine [Unknown]
  - Fatigue [Unknown]
  - Contusion [Unknown]
  - Pneumonia [Unknown]
  - Respiratory disorder [Unknown]

NARRATIVE: CASE EVENT DATE: 20180208
